FAERS Safety Report 16135459 (Version 2)
Quarter: 2019Q2

REPORT INFORMATION
  Report Type: Report from Study
  Country: BR (occurrence: BR)
  Receive Date: 20190329
  Receipt Date: 20190401
  Transmission Date: 20190711
  Serious: Yes (Hospitalization, Other)
  Sender: FDA-Public Use
  Company Number: BR-JNJFOC-20190332448

PATIENT
  Age: 32 Year
  Sex: Female

DRUGS (1)
  1. STELARA [Suspect]
     Active Substance: USTEKINUMAB
     Indication: PSORIASIS
     Dosage: 45MG/0,5ML ON WEEKS 0, 4 AND EVERY 12 WEEKS
     Route: 058
     Dates: start: 20171113, end: 20181119

REACTIONS (6)
  - Inappropriate schedule of product administration [Unknown]
  - Psoriasis [Unknown]
  - Hospitalisation [Unknown]
  - Drug ineffective [Unknown]
  - Erysipelas [Unknown]
  - Gait disturbance [Unknown]

NARRATIVE: CASE EVENT DATE: 20181119
